FAERS Safety Report 9750034 (Version 1)
Quarter: 2013Q4

REPORT INFORMATION
  Report Type: Spontaneous
  Country: DE (occurrence: DE)
  Receive Date: 20131212
  Receipt Date: 20131212
  Transmission Date: 20140711
  Serious: No
  Sender: FDA-Public Use
  Company Number: DE-GILEAD-DE-CVT-090666

PATIENT
  Age: 76 Year
  Sex: Male

DRUGS (8)
  1. RANEXA [Suspect]
     Indication: ANGINA PECTORIS
     Route: 048
     Dates: start: 20090620
  2. NEBILET [Concomitant]
     Route: 048
  3. RASILEZ [Concomitant]
     Route: 048
  4. SIMVASTATIN [Concomitant]
     Route: 048
  5. MOLSIDOMINE [Concomitant]
     Route: 048
  6. MONOCLAIR [Concomitant]
     Route: 048
  7. TORASEMIDE [Concomitant]
  8. MARCUMAR [Concomitant]
     Route: 048

REACTIONS (1)
  - Headache [Recovered/Resolved]
